FAERS Safety Report 6912762-X (Version None)
Quarter: 2010Q3

REPORT INFORMATION
  Report Type: 
  Country: None (occurrence: None)
  Receive Date: 20100806
  Receipt Date: 20081104
  Transmission Date: 20110219
  Serious: Yes (Other)
  Sender: FDA-Public Use
  Company Number: US-PFIZER INC-2008092951

PATIENT
  Sex: Male

DRUGS (1)
  1. VFEND [Suspect]
     Dates: start: 20081031, end: 20081104

REACTIONS (1)
  - HEPATIC FUNCTION ABNORMAL [None]
